FAERS Safety Report 10591766 (Version 1)
Quarter: 2014Q4

REPORT INFORMATION
  Report Type: Spontaneous
  Country: BR (occurrence: BR)
  Receive Date: 20141118
  Receipt Date: 20141118
  Transmission Date: 20150529
  Serious: Yes (Other)
  Sender: FDA-Public Use
  Company Number: PHHY2014BR150357

PATIENT
  Age: 72 Year
  Sex: Female

DRUGS (8)
  1. OLCADIL [Suspect]
     Active Substance: CLOXAZOLAM
     Indication: NERVOUSNESS
  2. EXELON [Suspect]
     Active Substance: RIVASTIGMINE TARTRATE
     Indication: DEMENTIA ALZHEIMER^S TYPE
     Dosage: UNK UNK, BID
     Route: 048
  3. NOVOSIL [Suspect]
     Active Substance: METOCLOPRAMIDE HYDROCHLORIDE
     Indication: FEAR
     Route: 065
  4. OLCADIL [Suspect]
     Active Substance: CLOXAZOLAM
     Indication: DEPRESSION
     Dosage: 1 DF, QD
     Route: 048
  5. EXELON [Suspect]
     Active Substance: RIVASTIGMINE TARTRATE
     Indication: DEMENTIA ALZHEIMER^S TYPE
     Dosage: UNK, BID
     Route: 048
  6. DIOVAN HCT [Suspect]
     Active Substance: HYDROCHLOROTHIAZIDE\VALSARTAN
     Indication: HYPERTENSION
     Dosage: 1 DF, QD (IN THE MORNING)
     Route: 048
  7. OLCADIL [Suspect]
     Active Substance: CLOXAZOLAM
     Indication: PANIC DISORDER
     Dosage: 2 DF, PRN (WHEN IS NERVOUS)
     Route: 048
  8. DIOVAN [Suspect]
     Active Substance: VALSARTAN
     Indication: HYPERTENSION
     Dosage: 1 DF, QD (IN THE MORNING)
     Route: 048

REACTIONS (3)
  - Gastritis [Not Recovered/Not Resolved]
  - Gastritis haemorrhagic [Recovered/Resolved]
  - Type 2 diabetes mellitus [Recovering/Resolving]
